FAERS Safety Report 4609924-3 (Version None)
Quarter: 2005Q1

REPORT INFORMATION
  Report Type: 
  Country: None (occurrence: None)
  Receive Date: 20050314
  Receipt Date: 20050314
  Transmission Date: 20050727
  Serious: Yes (Hospitalization)
  Sender: FDA-Public Use
  Company Number: None

PATIENT
  Age: 80 Year
  Sex: Male

DRUGS (5)
  1. PIROXICAM [Suspect]
     Indication: OSTEOARTHRITIS
     Dates: start: 20021101
  2. PIROXICAM [Suspect]
     Indication: PAIN
     Dates: start: 20021101
  3. RISPERIDONE [Concomitant]
  4. IRBESARTAN [Concomitant]
  5. HYDROCHLOROTHIAZIDE [Concomitant]

REACTIONS (1)
  - GASTROINTESTINAL DISORDER [None]
